FAERS Safety Report 19359957 (Version 3)
Quarter: 2021Q3

REPORT INFORMATION
  Report Type: Spontaneous
  Country: CO (occurrence: CO)
  Receive Date: 20210602
  Receipt Date: 20210819
  Transmission Date: 20211014
  Serious: No
  Sender: FDA-Public Use
  Company Number: CO-PFIZER INC-2021498122

PATIENT
  Age: 16 Year
  Sex: Male

DRUGS (1)
  1. GENOTROPIN [Suspect]
     Active Substance: SOMATROPIN
     Dosage: UNK

REACTIONS (3)
  - Device physical property issue [Unknown]
  - Drug dose omission by device [Unknown]
  - Expired device used [Unknown]

NARRATIVE: CASE EVENT DATE: 20210430
